FAERS Safety Report 20158573 (Version 1)
Quarter: 2021Q4

REPORT INFORMATION
  Report Type: Spontaneous
  Country: CA (occurrence: CA)
  Receive Date: 20211207
  Receipt Date: 20211207
  Transmission Date: 20220303
  Serious: Yes (Other)
  Sender: FDA-Public Use
  Company Number: CA-SAMSUNG BIOEPIS-SB-2021-28068

PATIENT
  Age: 78 Year
  Sex: Female
  Weight: 73 kg

DRUGS (4)
  1. INFLIXIMAB [Suspect]
     Active Substance: INFLIXIMAB
     Indication: Rheumatoid arthritis
     Route: 042
  2. DIPHENHYDRAMINE [Concomitant]
     Active Substance: DIPHENHYDRAMINE
     Indication: Premedication
     Route: 065
  3. GABAPENTIN [Concomitant]
     Active Substance: GABAPENTIN
     Indication: Osteoarthritis
     Route: 065
  4. LEFLUNOMIDE [Concomitant]
     Active Substance: LEFLUNOMIDE
     Indication: Product used for unknown indication
     Route: 048

REACTIONS (10)
  - Back pain [Recovered/Resolved]
  - Blood pressure increased [Recovered/Resolved]
  - Chills [Recovered/Resolved]
  - Cystitis [Recovered/Resolved]
  - Infusion related reaction [Recovered/Resolved]
  - Intervertebral disc protrusion [Recovered/Resolved]
  - Nasopharyngitis [Recovered/Resolved]
  - Urinary tract infection [Recovered/Resolved]
  - Product use issue [Recovered/Resolved]
  - Off label use [Recovered/Resolved]
